FAERS Safety Report 13159833 (Version 2)
Quarter: 2017Q2

REPORT INFORMATION
  Report Type: Report from Study
  Country: IN (occurrence: IN)
  Receive Date: 20170127
  Receipt Date: 20170609
  Transmission Date: 20170830
  Serious: Yes (Death, Hospitalization, Other)
  Sender: FDA-Public Use
  Company Number: PHHY2016IN108212

PATIENT
  Age: 42 Year
  Sex: Male

DRUGS (2)
  1. GLIVEC [Suspect]
     Active Substance: IMATINIB MESYLATE
     Dosage: 800 MG, UNK
     Route: 065
  2. GLIVEC [Suspect]
     Active Substance: IMATINIB MESYLATE
     Indication: CHRONIC MYELOID LEUKAEMIA
     Dosage: 600 MG, UNK
     Route: 065

REACTIONS (6)
  - Death [Fatal]
  - Second primary malignancy [Unknown]
  - Sarcoma [Unknown]
  - Full blood count decreased [Unknown]
  - Chronic myeloid leukaemia [Unknown]
  - Skin lesion [Unknown]

NARRATIVE: CASE EVENT DATE: 20170422
